FAERS Safety Report 9218290 (Version 2)
Quarter: 2014Q3

REPORT INFORMATION
  Report Type: Spontaneous
  Country: IN (occurrence: IN)
  Receive Date: 20130409
  Receipt Date: 20140923
  Transmission Date: 20150326
  Serious: Yes (Disabling, Other)
  Sender: FDA-Public Use
  Company Number: IN-RANBAXY-2013R1-67051

PATIENT
  Sex: Female

DRUGS (2)
  1. PENTAZOCINE LACTATE [Suspect]
     Active Substance: PENTAZOCINE LACTATE
     Indication: PRODUCT USED FOR UNKNOWN INDICATION
     Dosage: THREE TO FOUR TIMES DAILY
     Route: 030
  2. PROMETHAZINE [Concomitant]
     Active Substance: PROMETHAZINE\PROMETHAZINE HYDROCHLORIDE
     Indication: PRODUCT USED FOR UNKNOWN INDICATION
     Dosage: THREE TO FOUR TIMES DAILY
     Route: 030

REACTIONS (5)
  - Drug dependence [Recovered/Resolved]
  - Drug abuse [Unknown]
  - Muscle contracture [Unknown]
  - Myopathy [Unknown]
  - Deformity [Unknown]
